FAERS Safety Report 24835680 (Version 2)
Quarter: 2025Q1

REPORT INFORMATION
  Report Type: Report from Study
  Country: US (occurrence: US)
  Receive Date: 20250113
  Receipt Date: 20250115
  Transmission Date: 20250409
  Serious: Yes (Other)
  Sender: UCB
  Company Number: US-UCBSA-2025001628

PATIENT
  Age: 12 Year
  Sex: Male
  Weight: 26.3 kg

DRUGS (2)
  1. FINTEPLA [Suspect]
     Active Substance: FENFLURAMINE
     Indication: Seizure
     Dates: start: 20201217
  2. FINTEPLA [Suspect]
     Active Substance: FENFLURAMINE
     Dosage: 6.6 MILLIGRAM, ONCE DAILY (QD)

REACTIONS (2)
  - Tricuspid valve incompetence [Not Recovered/Not Resolved]
  - Mitral valve prolapse [Not Recovered/Not Resolved]

NARRATIVE: CASE EVENT DATE: 20250108
